FAERS Safety Report 5853099-X (Version None)
Quarter: 2008Q3

REPORT INFORMATION
  Report Type: 
  Country: None (occurrence: None)
  Receive Date: 20080821
  Receipt Date: 20080811
  Transmission Date: 20090109
  Serious: Yes (Other)
  Sender: FDA-Public Use
  Company Number: US-ABBOTT-08P-163-0469795-00

PATIENT
  Sex: Female

DRUGS (3)
  1. LUPRON DEPOT [Suspect]
     Indication: ENDOMETRIOSIS
     Route: 030
     Dates: start: 20080201
  2. LUPRON DEPOT [Suspect]
  3. LUPRON DEPOT [Suspect]

REACTIONS (3)
  - HAEMORRHAGIC OVARIAN CYST [None]
  - OVARIAN CYST RUPTURED [None]
  - PAIN [None]
